FAERS Safety Report 4681800-X (Version None)
Quarter: 2005Q2

REPORT INFORMATION
  Report Type: 
  Country: None (occurrence: None)
  Receive Date: 20050601
  Receipt Date: 20050519
  Transmission Date: 20051028
  Serious: Yes (Hospitalization)
  Sender: FDA-Public Use
  Company Number: 2005077031

PATIENT
  Age: 81 Year
  Sex: Female
  Weight: 71.2147 kg

DRUGS (2)
  1. CELEBREX [Suspect]
     Indication: ARTHRITIS
     Dosage: 100 MG (100 MG 1 IN 1 D)
  2. ZOCOR [Concomitant]

REACTIONS (6)
  - ARRHYTHMIA [None]
  - ASTHENIA [None]
  - BONE PAIN [None]
  - FEELING ABNORMAL [None]
  - INTRAOCULAR PRESSURE INCREASED [None]
  - MYALGIA [None]
